FAERS Safety Report 5989336-0 (Version None)
Quarter: 2008Q4

REPORT INFORMATION
  Report Type: 
  Country: None (occurrence: None)
  Receive Date: 20081210
  Receipt Date: 20081128
  Transmission Date: 20090506
  Serious: Yes (Hospitalization)
  Sender: FDA-Public Use
  Company Number: DE-PFIZER INC-2008083021

PATIENT

DRUGS (6)
  1. ZYVOXID [Suspect]
     Indication: INTERVERTEBRAL DISCITIS
     Route: 048
     Dates: start: 20080923, end: 20080924
  2. SULFAMETHOXAZOLE AND TRIMETHOPRIM [Suspect]
     Indication: INTERVERTEBRAL DISCITIS
     Route: 048
     Dates: start: 20080924
  3. SULFAMETHOXAZOLE AND TRIMETHOPRIM [Suspect]
     Indication: STAPHYLOCOCCAL INFECTION
  4. CARBIDOPA AND LEVODOPA [Concomitant]
     Dosage: UNK
     Route: 048
     Dates: start: 20070101
  5. RIFAMPICIN [Concomitant]
     Route: 042
     Dates: start: 20080801, end: 20080922
  6. VANCOMYCIN [Concomitant]
     Route: 042
     Dates: start: 20080801, end: 20080922

REACTIONS (6)
  - BLOOD ALKALINE PHOSPHATASE INCREASED [None]
  - BLOOD BILIRUBIN INCREASED [None]
  - C-REACTIVE PROTEIN INCREASED [None]
  - CHILLS [None]
  - GAMMA-GLUTAMYLTRANSFERASE INCREASED [None]
  - PYREXIA [None]
